FAERS Safety Report 12351430 (Version 2)
Quarter: 2016Q4

REPORT INFORMATION
  Report Type: Spontaneous
  Country: FR (occurrence: FR)
  Receive Date: 20160510
  Receipt Date: 20161209
  Transmission Date: 20170207
  Serious: Yes (Other)
  Sender: FDA-Public Use
  Company Number: FR-009507513-1604FRA012778

PATIENT
  Age: 74 Year
  Sex: Male
  Weight: 98 kg

DRUGS (7)
  1. MUPHORAN [Suspect]
     Active Substance: FOTEMUSTINE
     Indication: METASTATIC MALIGNANT MELANOMA
     Dosage: 200 MG (DAY 1)
     Route: 042
     Dates: start: 20160309
  2. JOSIR [Concomitant]
     Active Substance: TAMSULOSIN
     Route: 048
  3. AUGMENTIN [Suspect]
     Active Substance: AMOXICILLIN\CLAVULANATE POTASSIUM
     Dosage: 3 G/DAY FOR 5 DAYS
     Route: 048
     Dates: start: 20160331, end: 20160404
  4. MUPHORAN [Suspect]
     Active Substance: FOTEMUSTINE
     Dosage: 200 MG (DAY 8)
     Route: 042
     Dates: start: 20160317
  5. VESICARE [Concomitant]
     Active Substance: SOLIFENACIN SUCCINATE
     Route: 048
  6. MUPHORAN [Suspect]
     Active Substance: FOTEMUSTINE
     Dosage: 200 MG 3RD INFUSION (DAY 15)
     Route: 042
     Dates: start: 20160325
  7. KEYTRUDA [Suspect]
     Active Substance: PEMBROLIZUMAB
     Indication: METASTATIC MALIGNANT MELANOMA
     Dosage: 195 MG (DAY 1)
     Route: 042
     Dates: start: 20160411

REACTIONS (2)
  - Hepatocellular injury [Recovering/Resolving]
  - Cholestasis [Recovering/Resolving]

NARRATIVE: CASE EVENT DATE: 20160413
